FAERS Safety Report 4926676-8 (Version None)
Quarter: 2006Q1

REPORT INFORMATION
  Report Type: 
  Country: None (occurrence: None)
  Receive Date: 20060228
  Receipt Date: 20050523
  Transmission Date: 20060701
  Serious: Yes (Other)
  Sender: FDA-Public Use
  Company Number: US-GLAXOSMITHKLINE-A0559762A

PATIENT
  Age: 32 Year
  Sex: Female

DRUGS (4)
  1. LAMICTAL [Suspect]
     Indication: EPILEPSY
     Dosage: 50MG TWICE PER DAY
     Route: 048
     Dates: start: 20050512, end: 20050523
  2. MEDROL [Suspect]
  3. AGGRENOX [Concomitant]
  4. TEQUIN [Concomitant]

REACTIONS (3)
  - DRUG INEFFECTIVE [None]
  - LYMPHADENOPATHY [None]
  - RASH [None]
